FAERS Safety Report 23274557 (Version 2)
Quarter: 2023Q4

REPORT INFORMATION
  Report Type: Spontaneous
  Country: CA (occurrence: CA)
  Receive Date: 20231208
  Receipt Date: 20231212
  Transmission Date: 20240109
  Serious: Yes (Death, Life-Threatening, Disabling, Other)
  Sender: FDA-Public Use
  Company Number: None

PATIENT
  Age: 19 Year
  Sex: Male
  Weight: 98 kg

DRUGS (6)
  1. TACROLIMUS [Suspect]
     Active Substance: TACROLIMUS
     Indication: Product used for unknown indication
     Dosage: ASKED BUT UNKNOWN
  2. MYCOPHENOLATE MOFETIL [Suspect]
     Active Substance: MYCOPHENOLATE MOFETIL
     Indication: Product used for unknown indication
     Dosage: ASKED BUT UNKNOWN
  3. BUDESONIDE [Suspect]
     Active Substance: BUDESONIDE
     Indication: Product used for unknown indication
     Dosage: ASKED BUT UNKNOWN
  4. BECLOMETHASONE [Suspect]
     Active Substance: BECLOMETHASONE
     Indication: Product used for unknown indication
     Dosage: ASKED BUT UNKNOWN
  5. RUXOLITINIB [Suspect]
     Active Substance: RUXOLITINIB
     Indication: Acute graft versus host disease
     Dosage: TABLETS 5.0 MG, 2 EVERY 1 DAYS
     Route: 048
  6. ENTYVIO [Suspect]
     Active Substance: VEDOLIZUMAB
     Indication: Product used for unknown indication
     Dosage: ASKED BUT UNKNOWN
     Route: 042

REACTIONS (6)
  - Sepsis [Fatal]
  - Adenovirus infection [Fatal]
  - Multiple organ dysfunction syndrome [Fatal]
  - Acute graft versus host disease [Fatal]
  - Stenotrophomonas infection [Fatal]
  - Drug ineffective [Unknown]
